FAERS Safety Report 8332418-9 (Version None)
Quarter: 2012Q1

REPORT INFORMATION
  Report Type: 
  Country: None (occurrence: None)
  Receive Date: 20120315
  Receipt Date: 20110219
  Transmission Date: 20120608
  Serious: No
  Sender: FDA-Public Use
  Company Number: PHHY2011US15662

PATIENT
  Sex: Female

DRUGS (2)
  1. DITROPAN /CH/ (OXYBUTYNIN HYDROCHLORIDE) [Concomitant]
  2. GILENYA [Suspect]
     Indication: MULTIPLE SCLEROSIS
     Dosage: 0.5 MG, QD, ORAL
     Route: 048

REACTIONS (3)
  - THINKING ABNORMAL [None]
  - DISTURBANCE IN ATTENTION [None]
  - CONFUSIONAL STATE [None]
